FAERS Safety Report 15505748 (Version 4)
Quarter: 2019Q3

REPORT INFORMATION
  Report Type: Spontaneous
  Country: BR (occurrence: BR)
  Receive Date: 20181016
  Receipt Date: 20190706
  Transmission Date: 20191004
  Serious: Yes (Other)
  Sender: FDA-Public Use
  Company Number: BR-AMGEN-BRASP2014016007

PATIENT
  Age: 50 Year
  Sex: Female
  Weight: 68 kg

DRUGS (6)
  1. ENBREL [Suspect]
     Active Substance: ETANERCEPT
     Indication: RHEUMATOID ARTHRITIS
     Dosage: 50 MG, ONCE WEEKLY (ON WEDNESDAY)
     Route: 058
     Dates: start: 201308
  2. LEVOTHYROXINE SODIUM. [Concomitant]
     Active Substance: LEVOTHYROXINE SODIUM
     Dosage: 15 MG (1 TABLET), DAILY
     Dates: start: 20131206
  3. LANSOPRAZOL [Concomitant]
     Active Substance: LANSOPRAZOLE
     Dosage: 30 MG (1 TABLET), DAILY
     Dates: start: 2012
  4. OMEPRAZOLE. [Concomitant]
     Active Substance: OMEPRAZOLE
     Indication: GASTRIC DISORDER
     Dosage: 40 MILLIGRAM, UNK
  5. ENBREL [Suspect]
     Active Substance: ETANERCEPT
     Dosage: UNK
     Route: 058
     Dates: end: 20190306
  6. FLUOXETINE [Concomitant]
     Active Substance: FLUOXETINE HYDROCHLORIDE
     Indication: DEPRESSION
     Dosage: 20 MG (1 TABLET), DAILY
     Dates: start: 2009

REACTIONS (11)
  - Injection site pruritus [Unknown]
  - Oropharyngeal pain [Unknown]
  - Pyrexia [Unknown]
  - Injection site erythema [Unknown]
  - Influenza [Unknown]
  - Malaise [Unknown]
  - Injection site swelling [Unknown]
  - Glaucoma [Unknown]
  - Cough [Unknown]
  - Eye pain [Unknown]
  - Viral infection [Unknown]

NARRATIVE: CASE EVENT DATE: 20140225
